FAERS Safety Report 18642286 (Version 2)
Quarter: 2020Q4

REPORT INFORMATION
  Report Type: Other
  Country: IT (occurrence: IT)
  Receive Date: 20201221
  Receipt Date: 20201224
  Transmission Date: 20210114
  Serious: No
  Sender: FDA-Public Use
  Company Number: IT-ROCHE-2732979

PATIENT
  Age: 29 Year
  Sex: Male
  Weight: 80 kg

DRUGS (11)
  1. OCRELIZUMAB. [Suspect]
     Active Substance: OCRELIZUMAB
     Dosage: 300 MG/250 ML
     Route: 042
     Dates: start: 20200113
  2. ANTRA [Concomitant]
     Active Substance: OMEPRAZOLE
     Indication: PREMEDICATION
     Dosage: SUBSEQUENT DOSE: 13/JAN/2020 19/AUG/2020
     Route: 048
     Dates: start: 20191227
  3. GABAPENTIN. [Concomitant]
     Active Substance: GABAPENTIN
     Route: 048
     Dates: start: 201912, end: 20200819
  4. GABAPENTIN. [Concomitant]
     Active Substance: GABAPENTIN
     Route: 048
     Dates: start: 20200820
  5. BACLOFENE [Concomitant]
     Active Substance: BACLOFEN
     Route: 048
     Dates: start: 202008
  6. OCRELIZUMAB. [Suspect]
     Active Substance: OCRELIZUMAB
     Indication: MULTIPLE SCLEROSIS
     Dosage: 300 MG/250 ML
     Route: 042
     Dates: start: 20191227
  7. BACLOFENE [Concomitant]
     Active Substance: BACLOFEN
     Route: 048
     Dates: start: 20200519, end: 20200716
  8. TRIMETON [Concomitant]
     Active Substance: CHLORPHENIRAMINE MALEATE
     Indication: PREMEDICATION
     Dosage: SUBSEQUENT DOSE: 13/JAN/2020 19/AUG/2020
     Route: 030
     Dates: start: 20191227
  9. METHYLPREDNISOLONE. [Concomitant]
     Active Substance: METHYLPREDNISOLONE
     Indication: PREMEDICATION
     Dosage: SUBSEQUENT DOSE: 13/JAN/2020 19/AUG/2020
     Route: 042
     Dates: start: 20191227
  10. OCRELIZUMAB. [Suspect]
     Active Substance: OCRELIZUMAB
     Dosage: 600 MG/500 ML
     Route: 042
     Dates: start: 20200819
  11. BACLOFENE [Concomitant]
     Active Substance: BACLOFEN
     Route: 048
     Dates: start: 20200717, end: 202008

REACTIONS (1)
  - COVID-19 [Recovered/Resolved]

NARRATIVE: CASE EVENT DATE: 20200922
